FAERS Safety Report 7122414-1 (Version None)
Quarter: 2010Q4

REPORT INFORMATION
  Report Type: 
  Country: None (occurrence: None)
  Receive Date: 20101122
  Receipt Date: 20101122
  Transmission Date: 20110411
  Serious: Yes (Other)
  Sender: FDA-Public Use
  Company Number: None

PATIENT
  Age: 48 Year
  Sex: Male
  Weight: 81.8 kg

DRUGS (19)
  1. TEGRETOL [Suspect]
     Indication: CONVULSION
     Dosage: 200 MG BID ORAL
     Route: 048
     Dates: start: 20090901, end: 20101001
  2. SERTRALINE [Concomitant]
  3. DOXAZOSIN [Concomitant]
  4. NIASPAN [Concomitant]
  5. LEVOTHYROXINE [Concomitant]
  6. TRICOR [Concomitant]
  7. LORATADINE [Concomitant]
  8. BUSPIRONE [Concomitant]
  9. POLYETHYLENE GLYCOL [Concomitant]
  10. VITAMIN D [Concomitant]
  11. FISH OIL [Concomitant]
  12. SIMETHICONE [Concomitant]
  13. GUAIFENESIN [Concomitant]
  14. ACETAMINOPHEN [Concomitant]
  15. ASPIRIN [Concomitant]
  16. LACTAID FAST ACTING CHEWABLE [Concomitant]
  17. MILK OF MAGNESIA [Concomitant]
  18. XANAX [Concomitant]
  19. EXELON [Concomitant]

REACTIONS (3)
  - AGGRESSION [None]
  - COGNITIVE DISORDER [None]
  - HYPERAMMONAEMIA [None]
